FAERS Safety Report 25397480 (Version 1)
Quarter: 2025Q2

REPORT INFORMATION
  Report Type: Spontaneous
  Country: US (occurrence: US)
  Receive Date: 20250604
  Receipt Date: 20250604
  Transmission Date: 20250716
  Serious: No
  Sender: SANDOZ
  Company Number: US-SANDOZ-SDZ2025US038642

PATIENT
  Sex: Male

DRUGS (1)
  1. ALBUTEROL SULFATE [Suspect]
     Active Substance: ALBUTEROL SULFATE
     Indication: Product used for unknown indication
     Route: 048

REACTIONS (4)
  - Oral disorder [Unknown]
  - Oral mucosal eruption [Unknown]
  - Patient dissatisfaction with device [Unknown]
  - Product availability issue [Unknown]
